FAERS Safety Report 4281137-7 (Version None)
Quarter: 2004Q1

REPORT INFORMATION
  Report Type: 
  Country: None (occurrence: None)
  Receive Date: 20040127
  Receipt Date: 20040116
  Transmission Date: 20041129
  Serious: Yes (Hospitalization)
  Sender: FDA-Public Use
  Company Number: US-SHR-03-015152

PATIENT
  Age: 52 Year
  Sex: Female
  Weight: 45.4 kg

DRUGS (15)
  1. BETASERON [Suspect]
     Indication: MULTIPLE SCLEROSIS
     Dosage: SEE IMAGE
     Route: 058
     Dates: start: 20030726, end: 20030924
  2. BETASERON [Suspect]
     Indication: MULTIPLE SCLEROSIS
     Dosage: SEE IMAGE
     Route: 058
     Dates: start: 20030929, end: 20031001
  3. BETASERON [Suspect]
     Indication: MULTIPLE SCLEROSIS
     Dosage: SEE IMAGE
     Route: 058
     Dates: start: 20031001
  4. PNEUMOVAX 23 [Suspect]
     Dates: start: 20030922, end: 20030922
  5. TYLENOL (CAPLET) [Concomitant]
  6. CELEXA [Concomitant]
  7. TIZANIDINE (TIZANIDINE) [Concomitant]
  8. CORTICOSTEROIDS [Concomitant]
  9. BACLOFEN [Concomitant]
  10. COLACE (DOCUSATE SODIUM) [Concomitant]
  11. LACTULOSE [Concomitant]
  12. LISINOPRIL [Concomitant]
  13. MECLIZINE [Concomitant]
  14. ALBUTEROL [Concomitant]
  15. FOLIC ACID [Concomitant]

REACTIONS (14)
  - ADRENAL INSUFFICIENCY [None]
  - ASTHENIA [None]
  - CEREBRAL ATROPHY [None]
  - CEREBRAL ISCHAEMIA [None]
  - DEHYDRATION [None]
  - DYSARTHRIA [None]
  - FATIGUE [None]
  - HYPOTENSION [None]
  - MULTIPLE SCLEROSIS [None]
  - PARAPLEGIA [None]
  - SHOCK [None]
  - SPEECH DISORDER [None]
  - STUPOR [None]
  - TACHYCARDIA [None]
